FAERS Safety Report 4993021-1 (Version None)
Quarter: 2006Q2

REPORT INFORMATION
  Report Type: 
  Country: None (occurrence: None)
  Receive Date: 20060504
  Receipt Date: 20060123
  Transmission Date: 20061013
  Serious: Yes (Hospitalization)
  Sender: FDA-Public Use
  Company Number: US-MERCK-0601USA02863

PATIENT
  Age: 55 Year
  Sex: Female
  Weight: 91 kg

DRUGS (2)
  1. VIOXX [Suspect]
     Indication: RHEUMATOID ARTHRITIS
     Route: 048
     Dates: start: 20020101, end: 20040101
  2. CELEBREX [Concomitant]
     Route: 065

REACTIONS (15)
  - ASTHENIA [None]
  - ASTHMA [None]
  - CHEST PAIN [None]
  - CHRONIC OBSTRUCTIVE PULMONARY DISEASE [None]
  - DECREASED ACTIVITY [None]
  - DEPRESSION [None]
  - DIABETES MELLITUS [None]
  - DYSPNOEA [None]
  - EMOTIONAL DISTRESS [None]
  - EMPHYSEMA [None]
  - HYPERTENSION [None]
  - MYOCARDIAL INFARCTION [None]
  - OESOPHAGEAL DISORDER [None]
  - PAIN [None]
  - SLEEP APNOEA SYNDROME [None]
